FAERS Safety Report 13167122 (Version 1)
Quarter: 2017Q1

REPORT INFORMATION
  Report Type: Spontaneous
  Country: US (occurrence: US)
  Receive Date: 20170130
  Receipt Date: 20170130
  Transmission Date: 20170428
  Serious: Yes (Life-Threatening)
  Sender: FDA-Public Use
  Company Number: None

PATIENT
  Age: 41 Year
  Sex: Female
  Weight: 56.25 kg

DRUGS (3)
  1. ZYPREXA 2.5MG, [Concomitant]
  2. INVEGA SUSTENNA [Suspect]
     Active Substance: PALIPERIDONE PALMITATE
     Indication: BIPOLAR DISORDER
     Dosage: ?          QUANTITY:1 INJECTION(S);OTHER FREQUENCY:ONCE PER MONTH;?
     Route: 030
     Dates: start: 20160828, end: 20160928
  3. LITHIUM. [Concomitant]
     Active Substance: LITHIUM

REACTIONS (8)
  - Myalgia [None]
  - Mania [None]
  - Emotional disorder [None]
  - Restlessness [None]
  - Mental disorder [None]
  - Suicidal ideation [None]
  - Fear [None]
  - Malaise [None]

NARRATIVE: CASE EVENT DATE: 20160901
